FAERS Safety Report 7704694-4 (Version None)
Quarter: 2011Q3

REPORT INFORMATION
  Report Type: 
  Country: None (occurrence: None)
  Receive Date: 20110823
  Receipt Date: 20110815
  Transmission Date: 20111222
  Serious: Yes (Hospitalization)
  Sender: FDA-Public Use
  Company Number: US-JNJFOC-20101202932

PATIENT
  Sex: Male
  Weight: 54.6 kg

DRUGS (8)
  1. REMICADE [Suspect]
     Route: 042
     Dates: start: 20101014
  2. MULTIPLE VITAMIN [Concomitant]
  3. ANTIBIOTICS [Concomitant]
     Indication: INFLAMMATORY BOWEL DISEASE
  4. NEXIUM [Concomitant]
  5. PREDNISONE TAB [Concomitant]
  6. REMICADE [Suspect]
     Indication: CROHN'S DISEASE
     Route: 042
     Dates: start: 20100713
  7. MESALAMINE [Concomitant]
     Route: 048
  8. FERROUS SULFATE TAB [Concomitant]

REACTIONS (1)
  - CROHN'S DISEASE [None]
